FAERS Safety Report 6192756-5 (Version None)
Quarter: 2009Q2

REPORT INFORMATION
  Report Type: 
  Country: None (occurrence: None)
  Receive Date: 20090518
  Receipt Date: 20090505
  Transmission Date: 20091009
  Serious: Yes (Hospitalization)
  Sender: FDA-Public Use
  Company Number: CH-AMGEN-QUU345635

PATIENT
  Sex: Male
  Weight: 69 kg

DRUGS (12)
  1. ARANESP [Suspect]
     Indication: DIALYSIS
     Route: 058
     Dates: start: 20090403, end: 20090423
  2. RAMIPRIL [Concomitant]
     Route: 048
     Dates: start: 20081230
  3. METOPROLOL [Concomitant]
     Route: 048
     Dates: start: 20081230
  4. AMLODIPINE [Concomitant]
     Route: 048
     Dates: start: 20081230
  5. TORSEMIDE [Concomitant]
     Route: 048
     Dates: start: 20081230
  6. ATORVASTATIN [Concomitant]
     Route: 048
     Dates: start: 20081230
  7. ESOMEPRAZOLE MAGNESIUM [Concomitant]
     Route: 048
     Dates: start: 20081230
  8. CALCIUM ACETATE [Concomitant]
     Route: 048
     Dates: start: 20081230
  9. SEVELAMER [Concomitant]
     Route: 048
     Dates: start: 20090310
  10. THIAMINE HCL [Concomitant]
     Route: 048
     Dates: start: 20090310
  11. FOLIC ACID [Concomitant]
  12. ASCORBIC ACID [Concomitant]

REACTIONS (4)
  - ABSCESS LIMB [None]
  - LEUKOCYTOSIS [None]
  - NECROTISING FASCIITIS [None]
  - PAIN IN EXTREMITY [None]
